FAERS Safety Report 7197633-9 (Version None)
Quarter: 2010Q4

REPORT INFORMATION
  Report Type: 
  Country: None (occurrence: None)
  Receive Date: 20101227
  Receipt Date: 20101220
  Transmission Date: 20110411
  Serious: Yes (Other)
  Sender: FDA-Public Use
  Company Number: US-PFIZER INC-2010136200

PATIENT
  Sex: Male
  Weight: 64.86 kg

DRUGS (8)
  1. LIPITOR [Suspect]
     Indication: HYPERLIPIDAEMIA
     Dosage: 10 MG, 1X/DAY
     Route: 048
     Dates: start: 20090608
  2. BENICAR [Concomitant]
     Indication: HYPERTENSION
     Dosage: UNK
  3. PREVACID [Concomitant]
     Indication: GASTROOESOPHAGEAL REFLUX DISEASE
     Dosage: 30 MG
  4. PREVACID [Concomitant]
  5. ZANTAC [Concomitant]
     Dosage: UNK
  6. ACETYLSALICYLIC ACID [Concomitant]
     Dosage: 81 MG, 1X/DAY
     Route: 048
  7. ERYTHROMYCIN [Concomitant]
     Dosage: UNK
     Route: 047
  8. TOBRAMYCIN SULFATE [Concomitant]
     Dosage: UNK

REACTIONS (3)
  - HYPOTHYROIDISM [None]
  - THYROIDITIS [None]
  - TINEA INFECTION [None]
